FAERS Safety Report 7016659-9 (Version None)
Quarter: 2010Q3

REPORT INFORMATION
  Report Type: 
  Country: None (occurrence: None)
  Receive Date: 20100927
  Receipt Date: 20100917
  Transmission Date: 20110219
  Serious: No
  Sender: FDA-Public Use
  Company Number: US-B.I. PHARMACEUTICALS,INC./RIDGEFIELD-2010-BP-10656BP

PATIENT
  Sex: Female

DRUGS (1)
  1. ZANTAC 150 [Suspect]
     Indication: FOOD ALLERGY
     Dosage: 150 MG
     Route: 048
     Dates: start: 20100901, end: 20100901

REACTIONS (2)
  - OEDEMA MOUTH [None]
  - TONGUE DISORDER [None]
